FAERS Safety Report 9014061 (Version 2)
Quarter: 2013Q1

REPORT INFORMATION
  Report Type: Spontaneous
  Country: DE (occurrence: DE)
  Receive Date: 20130115
  Receipt Date: 20130205
  Transmission Date: 20140127
  Serious: Yes (Hospitalization, Other)
  Sender: FDA-Public Use
  Company Number: DE-ROCHE-1178997

PATIENT
  Sex: Female

DRUGS (5)
  1. ZELBORAF [Suspect]
     Indication: METASTATIC MALIGNANT MELANOMA
     Route: 065
     Dates: start: 20120704
  2. ZELBORAF [Suspect]
     Dosage: DOSE REDUCED
     Route: 065
     Dates: end: 20121218
  3. DEXAMETHASONE [Concomitant]
     Indication: BRAIN OEDEMA
     Route: 048
  4. CAPROS [Concomitant]
     Indication: PAIN
     Dosage: DRUG NAME: CAPROS RETARD
     Route: 048
  5. PANTOZOL [Concomitant]
     Indication: ULCER
     Dosage: ULCER PROPHYLAXIS
     Route: 048

REACTIONS (6)
  - Convulsion [Recovered/Resolved]
  - General physical health deterioration [Not Recovered/Not Resolved]
  - Dysphagia [Not Recovered/Not Resolved]
  - Metastases to meninges [Not Recovered/Not Resolved]
  - Abdominal discomfort [Unknown]
  - Gamma-glutamyltransferase increased [Recovered/Resolved]
